FAERS Safety Report 7544220-6 (Version None)
Quarter: 2011Q2

REPORT INFORMATION
  Report Type: 
  Country: None (occurrence: None)
  Receive Date: 20110613
  Receipt Date: 20061207
  Transmission Date: 20111010
  Serious: Yes (Life-Threatening, Hospitalization, Other)
  Sender: FDA-Public Use
  Company Number: PHNR2006AU01189

PATIENT
  Sex: Male

DRUGS (1)
  1. CLOZAPINE [Suspect]
     Indication: SCHIZOPHRENIA
     Dosage: 12-450MG
     Route: 048
     Dates: start: 19991220, end: 20060906

REACTIONS (5)
  - LUNG NEOPLASM MALIGNANT [None]
  - LEUKOPENIA [None]
  - AGRANULOCYTOSIS [None]
  - LYMPH NODES SCAN ABNORMAL [None]
  - NEUTROPHIL COUNT DECREASED [None]
